FAERS Safety Report 16028036 (Version 1)
Quarter: 2019Q1

REPORT INFORMATION
  Report Type: Spontaneous
  Country: US (occurrence: US)
  Receive Date: 20190304
  Receipt Date: 20190304
  Transmission Date: 20190418
  Serious: No
  Sender: FDA-Public Use
  Company Number: US-BRISTOL-MYERS SQUIBB COMPANY-BMS-2019-021625

PATIENT
  Sex: Male

DRUGS (1)
  1. OPDIVO [Suspect]
     Active Substance: NIVOLUMAB
     Indication: PRODUCT USED FOR UNKNOWN INDICATION
     Dosage: UNK
     Route: 042

REACTIONS (8)
  - Dyspnoea [Unknown]
  - Rash generalised [Unknown]
  - Rash [Unknown]
  - Feeling abnormal [Unknown]
  - Skin exfoliation [Unknown]
  - Cerebral disorder [Unknown]
  - Pain of skin [Unknown]
  - Pain in extremity [Unknown]
